FAERS Safety Report 4388865-3 (Version None)
Quarter: 2004Q2

REPORT INFORMATION
  Report Type: 
  Country: None (occurrence: None)
  Receive Date: 20040628
  Receipt Date: 20040605
  Transmission Date: 20050107
  Serious: Yes (Death, Hospitalization)
  Sender: FDA-Public Use
  Company Number: JP-JNJFOC-20040506901

PATIENT
  Age: 64 Year
  Sex: Female
  Weight: 51 kg

DRUGS (19)
  1. REMICADE [Suspect]
     Indication: RHEUMATOID ARTHRITIS
     Dosage: SEE IMAGE
     Route: 041
     Dates: start: 20040227, end: 20040227
  2. REMICADE [Suspect]
     Indication: RHEUMATOID ARTHRITIS
     Dosage: SEE IMAGE
     Route: 041
     Dates: start: 20040312, end: 20040312
  3. RHEUMATREX [Suspect]
     Indication: DRUG USE FOR UNKNOWN INDICATION
     Dosage: SEE IMAGE
     Route: 048
     Dates: start: 19960101, end: 19990802
  4. RHEUMATREX [Suspect]
     Indication: DRUG USE FOR UNKNOWN INDICATION
     Dosage: SEE IMAGE
     Route: 048
     Dates: start: 19990803, end: 20030827
  5. RHEUMATREX [Suspect]
     Indication: DRUG USE FOR UNKNOWN INDICATION
     Dosage: SEE IMAGE
     Route: 048
     Dates: start: 20030328, end: 20040421
  6. BREDININ (MIZORIBINE) [Suspect]
     Indication: DRUG USE FOR UNKNOWN INDICATION
  7. PREDNISOLONE [Suspect]
     Indication: DRUG USE FOR UNKNOWN INDICATION
     Dosage: 5 MG, 4 IN 1 DAY, ORAL
     Route: 048
  8. RIMATIL (BUCILLAMINE) [Concomitant]
  9. MOBIC [Concomitant]
  10. ALMARL (AROTINOLOL HYDROCHLORIDE) [Concomitant]
  11. ALFAROL (ALFACALCIDOL) [Concomitant]
  12. LANSOPRAZOLE [Concomitant]
  13. TEGRETOL [Concomitant]
  14. ANAFRANIL [Concomitant]
  15. CYTOTEC [Concomitant]
  16. SENNOSIDE (ALL OTHER THERAPEUTIC PRODUCTS) [Concomitant]
  17. LEPETAN (BUPRENORPHINE HYDROCHLORIDE) [Concomitant]
  18. LANDSEN (CLONAZEPAM) [Concomitant]
  19. PLASMA IMMUNOADSORPTION THERAPY (ALL OTHER THERAPEUTIC PRODUCTS) [Concomitant]

REACTIONS (14)
  - BACTERIAL INFECTION [None]
  - BLOOD LACTATE DEHYDROGENASE INCREASED [None]
  - BLOOD SODIUM DECREASED [None]
  - BLOOD SODIUM INCREASED [None]
  - BLOOD UREA INCREASED [None]
  - CREATINE PHOSPHOKINASE DECREASED [None]
  - DRUG INTERACTION [None]
  - HAEMATOCRIT DECREASED [None]
  - HAEMOGLOBIN DECREASED [None]
  - IMMUNOSUPPRESSION [None]
  - PLATELET COUNT DECREASED [None]
  - SEPSIS [None]
  - STREPTOCOCCAL SEROLOGY [None]
  - ULCER [None]
